FAERS Safety Report 5763296-X (Version None)
Quarter: 2008Q2

REPORT INFORMATION
  Report Type: 
  Country: None (occurrence: None)
  Receive Date: 20080604
  Receipt Date: 20080604
  Transmission Date: 20081010
  Serious: Yes (Other)
  Sender: FDA-Public Use
  Company Number: None

PATIENT
  Age: 74 Year
  Sex: Male
  Weight: 81.6475 kg

DRUGS (1)
  1. ALDARA [Suspect]
     Indication: PRECANCEROUS CELLS PRESENT
     Dosage: SIZE OF A PEA ONCE A DAY ON HEAD
     Dates: start: 20080507, end: 20080525

REACTIONS (13)
  - ANOREXIA [None]
  - ASTHENIA [None]
  - BACK PAIN [None]
  - BODY TEMPERATURE DECREASED [None]
  - CHILLS [None]
  - DYSGEUSIA [None]
  - FEELING ABNORMAL [None]
  - HEADACHE [None]
  - INFLUENZA LIKE ILLNESS [None]
  - NEUROPATHY PERIPHERAL [None]
  - PARAESTHESIA [None]
  - PYREXIA [None]
  - WEIGHT DECREASED [None]
